FAERS Safety Report 20258533 (Version 1)
Quarter: 2021Q4

REPORT INFORMATION
  Report Type: Spontaneous
  Country: HR (occurrence: HR)
  Receive Date: 20211230
  Receipt Date: 20211230
  Transmission Date: 20220303
  Serious: Yes (Other)
  Sender: FDA-Public Use
  Company Number: None

PATIENT
  Age: 23 Year
  Sex: Female
  Weight: 47 kg

DRUGS (1)
  1. HULIO [Suspect]
     Active Substance: ADALIMUMAB-FKJP
     Indication: Colitis ulcerative
     Dosage: 40 MILLIGRAM, Q2W, 40 MILLIGRAM, SUBCUTANEOUS EVERY 14 DAYS
     Route: 058
     Dates: start: 201906, end: 202108

REACTIONS (3)
  - Haematochezia [Recovered/Resolved]
  - Frequent bowel movements [Recovered/Resolved]
  - Drug ineffective [Recovered/Resolved]

NARRATIVE: CASE EVENT DATE: 20210801
